FAERS Safety Report 10176144 (Version 1)
Quarter: 2014Q2

REPORT INFORMATION
  Report Type: Spontaneous
  Country: US (occurrence: US)
  Receive Date: 20140516
  Receipt Date: 20140516
  Transmission Date: 20141212
  Serious: No
  Sender: FDA-Public Use
  Company Number: US-PFIZER INC-2014130727

PATIENT
  Age: 55 Year
  Sex: 0

DRUGS (8)
  1. MORPHINE SULFATE [Suspect]
     Dosage: UNK
  2. SPIRIVA [Suspect]
     Dosage: UNK
  3. DEMEROL [Suspect]
     Dosage: UNK
  4. TORADOL [Suspect]
     Dosage: UNK
  5. LORTAB [Suspect]
     Dosage: UNK
  6. WELLBUTRIN [Suspect]
     Dosage: UNK
  7. ASPIRIN [Suspect]
     Dosage: UNK
  8. TALWIN [Suspect]
     Dosage: UNK

REACTIONS (1)
  - Drug hypersensitivity [Unknown]
